FAERS Safety Report 7498604-5 (Version None)
Quarter: 2011Q2

REPORT INFORMATION
  Report Type: 
  Country: None (occurrence: None)
  Receive Date: 20110524
  Receipt Date: 20110429
  Transmission Date: 20111010
  Serious: Yes (Hospitalization, Other)
  Sender: FDA-Public Use
  Company Number: US-BAYER-2010-002175

PATIENT
  Age: 26 Year
  Sex: Female
  Weight: 51.701 kg

DRUGS (2)
  1. YAZ [Suspect]
     Indication: CONTRACEPTION
     Dosage: UNK
     Dates: start: 20080401, end: 20091101
  2. YAZ [Suspect]
     Indication: ACNE

REACTIONS (7)
  - VOMITING [None]
  - EPIGASTRIC DISCOMFORT [None]
  - CHOLECYSTITIS CHRONIC [None]
  - HAEMOBILIA [None]
  - DIARRHOEA [None]
  - BACK PAIN [None]
  - CHOLELITHIASIS [None]
